FAERS Safety Report 6339902-8 (Version None)
Quarter: 2009Q3

REPORT INFORMATION
  Report Type: 
  Country: None (occurrence: None)
  Receive Date: 20090903
  Receipt Date: 20090825
  Transmission Date: 20100115
  Serious: Yes (Other)
  Sender: FDA-Public Use
  Company Number: PHHY2009PT35820

PATIENT
  Sex: Male

DRUGS (2)
  1. ZOMETA [Suspect]
     Indication: LUNG CANCER METASTATIC
     Dosage: 4 MG EVERY 4 WEEKS
     Dates: start: 20090408, end: 20090703
  2. RADIOTHERAPY [Concomitant]

REACTIONS (3)
  - HYPERHIDROSIS [None]
  - HYPERTENSION [None]
  - LOSS OF CONSCIOUSNESS [None]
